FAERS Safety Report 6530007-X (Version None)
Quarter: 2010Q1

REPORT INFORMATION
  Report Type: 
  Country: None (occurrence: None)
  Receive Date: 20100107
  Receipt Date: 20091224
  Transmission Date: 20100710
  Serious: Yes (Other)
  Sender: FDA-Public Use
  Company Number: CA-MYLANLABS-2009S1022107

PATIENT
  Age: 83 Year
  Sex: Female

DRUGS (5)
  1. GEN-NIFEDIPINE [Suspect]
     Indication: HYPERTENSION
  2. VASOTEC [Concomitant]
  3. ATACAND D [Concomitant]
  4. LASIX [Concomitant]
  5. CLONIDINE [Concomitant]

REACTIONS (3)
  - BLOOD PRESSURE INADEQUATELY CONTROLLED [None]
  - DRUG INEFFECTIVE [None]
  - OEDEMA PERIPHERAL [None]
